FAERS Safety Report 5605320-0 (Version None)
Quarter: 2008Q1

REPORT INFORMATION
  Report Type: 
  Country: None (occurrence: None)
  Receive Date: 20080123
  Receipt Date: 20080107
  Transmission Date: 20080703
  Serious: Yes (Death, Hospitalization)
  Sender: FDA-Public Use
  Company Number: IMP_03387_2008

PATIENT
  Age: 24 Year
  Sex: Male

DRUGS (2)
  1. ALPRAZOLAM [Suspect]
     Indication: DRUG USE FOR UNKNOWN INDICATION
     Dosage: (15 MG 1X 15MG OVERDOSE ORAL)
     Route: 048
  2. METHADONE HCL [Suspect]
     Indication: DRUG USE FOR UNKNOWN INDICATION
     Dosage: (70 MG 1X 70MG OVERDOSE ORAL)
     Route: 048

REACTIONS (9)
  - ANOXIC ENCEPHALOPATHY [None]
  - CARDIAC ARREST [None]
  - CARDIAC HYPERTROPHY [None]
  - ELECTROCARDIOGRAM QT PROLONGED [None]
  - HEART RATE INCREASED [None]
  - LOSS OF CONSCIOUSNESS [None]
  - MULTIPLE DRUG OVERDOSE [None]
  - NO THERAPEUTIC RESPONSE [None]
  - POISONING [None]
